FAERS Safety Report 9070240 (Version 2)
Quarter: 2013Q1

REPORT INFORMATION
  Report Type: Spontaneous
  Country: US (occurrence: US)
  Receive Date: 20130215
  Receipt Date: 20130325
  Transmission Date: 20140127
  Serious: No
  Sender: FDA-Public Use
  Company Number: US-009507513-1302USA003855

PATIENT
  Age: 42 Year
  Sex: Female

DRUGS (2)
  1. IMPLANON [Suspect]
     Indication: CONTRACEPTION
     Dosage: EVERY 3 YEARS
     Route: 059
     Dates: start: 20090731
  2. WELLBUTRIN [Concomitant]

REACTIONS (3)
  - Menstruation irregular [Unknown]
  - Incorrect drug administration duration [Unknown]
  - Expired drug administered [Unknown]
